FAERS Safety Report 22104465 (Version 3)
Quarter: 2024Q2

REPORT INFORMATION
  Report Type: Spontaneous
  Country: JP (occurrence: JP)
  Receive Date: 20230316
  Receipt Date: 20240524
  Transmission Date: 20240716
  Serious: Yes (Other)
  Sender: FDA-Public Use
  Company Number: JP-SA-2023SA080893

PATIENT
  Age: 76 Year
  Sex: Male

DRUGS (1)
  1. DUPIXENT [Suspect]
     Active Substance: DUPILUMAB
     Indication: Rash
     Route: 058

REACTIONS (4)
  - Cutaneous T-cell lymphoma [Unknown]
  - Dermatitis exfoliative generalised [Unknown]
  - Off label use [Unknown]
  - Drug effective for unapproved indication [Unknown]
